FAERS Safety Report 6637955-0 (Version None)
Quarter: 2010Q1

REPORT INFORMATION
  Report Type: 
  Country: None (occurrence: None)
  Receive Date: 20100315
  Receipt Date: 20100315
  Transmission Date: 20100710
  Serious: Yes (Other)
  Sender: FDA-Public Use
  Company Number: None

PATIENT
  Age: 42 Year
  Sex: Female
  Weight: 68.0396 kg

DRUGS (2)
  1. AUGMENTIN '125' [Suspect]
     Indication: EAR INFECTION
     Dosage: 2 TABLETS TWICE DAILY PO
     Route: 048
     Dates: start: 20100216, end: 20100223
  2. AMOXICILLIN/CLAVULANATE POTASSIUM [Suspect]
     Indication: EAR INFECTION
     Dosage: 1 TABLET TWICE A DAY PO
     Route: 048
     Dates: start: 20100127, end: 20100207

REACTIONS (5)
  - ABASIA [None]
  - ARTHRALGIA [None]
  - MUSCLE RUPTURE [None]
  - MYALGIA [None]
  - PAIN [None]
